FAERS Safety Report 24823756 (Version 1)
Quarter: 2025Q1

REPORT INFORMATION
  Report Type: Spontaneous
  Country: BR (occurrence: BR)
  Receive Date: 20250109
  Receipt Date: 20250109
  Transmission Date: 20250409
  Serious: Yes (Hospitalization)
  Sender: BOEHRINGER INGELHEIM
  Company Number: BR-Komodo Health-a23aa00000485GMAAY

PATIENT
  Sex: Male
  Weight: 92 kg

DRUGS (3)
  1. EMPAGLIFLOZIN\METFORMIN HYDROCHLORIDE [Suspect]
     Active Substance: EMPAGLIFLOZIN\METFORMIN HYDROCHLORIDE
     Indication: Glucose tolerance impaired
     Dosage: FORM STRENGTH: 12.5MG + 850MG, 2 TABLETS A DAY, ONE IN THE MORNING AND ONE AT NIGHT?USED FOR TYPE 2
     Route: 048
     Dates: start: 20240826
  2. EMPAGLIFLOZIN\METFORMIN HYDROCHLORIDE [Suspect]
     Active Substance: EMPAGLIFLOZIN\METFORMIN HYDROCHLORIDE
     Indication: Type 2 diabetes mellitus
     Dates: end: 2022
  3. EMPAGLIFLOZIN\METFORMIN HYDROCHLORIDE [Suspect]
     Active Substance: EMPAGLIFLOZIN\METFORMIN HYDROCHLORIDE
     Dosage: FORM STRENGTH: 12.5MG + 1000MG, 1 TABLET A DAY, IN THE MORNING

REACTIONS (8)
  - Coagulopathy [Not Recovered/Not Resolved]
  - Arterial occlusive disease [Not Recovered/Not Resolved]
  - Intentional product use issue [Recovered/Resolved]
  - Product dispensing error [Recovered/Resolved]
  - Weight decreased [Unknown]
  - Blood cholesterol increased [Unknown]
  - Blood uric acid increased [Unknown]
  - Type 2 diabetes mellitus [Unknown]

NARRATIVE: CASE EVENT DATE: 20240801
